FAERS Safety Report 4954720-0 (Version None)
Quarter: 2006Q1

REPORT INFORMATION
  Report Type: 
  Country: None (occurrence: None)
  Receive Date: 20060322
  Receipt Date: 20060315
  Transmission Date: 20060701
  Serious: Yes (Death, Hospitalization)
  Sender: FDA-Public Use
  Company Number: 200610162BFR

PATIENT
  Age: 66 Year
  Sex: Female
  Weight: 76 kg

DRUGS (5)
  1. SORAFENIB [Suspect]
     Indication: RENAL CELL CARCINOMA STAGE UNSPECIFIED
     Dosage: 400 MG, BID, ORAL
     Route: 048
     Dates: start: 20060210, end: 20060213
  2. RIVOTRIL [Concomitant]
  3. DAFALGAN [Concomitant]
  4. COAPROVEL [Concomitant]
  5. ZOMETA [Concomitant]

REACTIONS (16)
  - ANAEMIA [None]
  - BLOOD PRESSURE SYSTOLIC INCREASED [None]
  - CYTOLYTIC HEPATITIS [None]
  - FAECALITH [None]
  - HEPATIC HAEMORRHAGE [None]
  - HEPATIC RUPTURE [None]
  - HYPERKALAEMIA [None]
  - ILEUS [None]
  - LIVER TRANSPLANT [None]
  - METASTASES TO LIVER [None]
  - PERITONEAL EFFUSION [None]
  - PERITONEAL HAEMORRHAGE [None]
  - PLEURAL EFFUSION [None]
  - PROCEDURAL COMPLICATION [None]
  - RENAL FAILURE [None]
  - RETROPERITONEAL HAEMORRHAGE [None]
